FAERS Safety Report 24888805 (Version 1)
Quarter: 2025Q1

REPORT INFORMATION
  Report Type: Spontaneous
  Country: FR (occurrence: FR)
  Receive Date: 20250127
  Receipt Date: 20250127
  Transmission Date: 20250409
  Serious: Yes (Life-Threatening, Hospitalization, Other)
  Sender: COSETTE PHARMACEUTICALS INC
  Company Number: FR-COSETTE-CP2025FR000053

PATIENT
  Age: 59 Year
  Sex: Male

DRUGS (1)
  1. DOXYCYCLINE [Suspect]
     Active Substance: DOXYCYCLINE
     Indication: Infection
     Route: 065

REACTIONS (1)
  - Eosinophilic myocarditis [Recovered/Resolved]
